FAERS Safety Report 4551948-9 (Version None)
Quarter: 2004Q4

REPORT INFORMATION
  Report Type: 
  Country: None (occurrence: None)
  Receive Date: 20041217
  Receipt Date: 20041011
  Transmission Date: 20050328
  Serious: No
  Sender: FDA-Public Use
  Company Number: 2004-BP-09837BP

PATIENT
  Age: 72 Year
  Sex: Female

DRUGS (8)
  1. SPIRIVA [Suspect]
     Indication: CHRONIC OBSTRUCTIVE AIRWAYS DISEASE
     Dosage: 18 MCG (18  MCG), IH
     Route: 055
     Dates: start: 20040801
  2. SPIRIVA [Suspect]
  3. SINGULAIR (MONTELUKAST) [Concomitant]
  4. PROPOXYPHENE (DEXTROPROPOXYPHENE) [Concomitant]
  5. TUSSIONEX (TUSSIONEX) [Concomitant]
  6. MIACALCIN [Concomitant]
  7. ALBUTEROL [Concomitant]
  8. OXYGEN (OXYGEN) [Concomitant]

REACTIONS (1)
  - OEDEMA PERIPHERAL [None]
